FAERS Safety Report 8822388 (Version 1)
Quarter: 2012Q4

REPORT INFORMATION
  Report Type: 
  Country: US (occurrence: US)
  Receive Date: 20121003
  Receipt Date: 20121003
  Transmission Date: 20130627
  Serious: No
  Sender: FDA-Public Use
  Company Number: US-ASTRAZENECA-2012SE21898

PATIENT
  Age: 63 Year
  Sex: Female

DRUGS (1)
  1. NEXIUM [Suspect]
     Route: 048

REACTIONS (8)
  - Diabetes mellitus [Unknown]
  - Hypertension [Unknown]
  - Inner ear disorder [Unknown]
  - Vertigo [Unknown]
  - Dyspepsia [Unknown]
  - Chest pain [Unknown]
  - Ulcer [Unknown]
  - Drug ineffective [Unknown]
